FAERS Safety Report 7805182-7 (Version None)
Quarter: 2011Q4

REPORT INFORMATION
  Report Type: 
  Country: None (occurrence: None)
  Receive Date: 20111010
  Receipt Date: 20110929
  Transmission Date: 20120403
  Serious: Yes (Other)
  Sender: FDA-Public Use
  Company Number: US-BAYER-2011-064295

PATIENT
  Age: 69 Year
  Sex: Male

DRUGS (5)
  1. NEXAVAR [Suspect]
     Dosage: 200 MG, BID
     Route: 048
     Dates: start: 20110630, end: 20110729
  2. NEXAVAR [Suspect]
     Dosage: 200 MG, BID
     Dates: end: 20110811
  3. TEMSIROLIMUS [Concomitant]
     Dosage: UNK UNK, OW
     Route: 042
  4. NEXAVAR [Suspect]
     Indication: THYROID CANCER METASTATIC
     Dosage: 200 MG, BID
     Route: 048
     Dates: start: 20110608
  5. LIPITOR [Concomitant]
     Indication: BLOOD CHOLESTEROL INCREASED

REACTIONS (11)
  - MEMORY IMPAIRMENT [None]
  - EPISTAXIS [None]
  - BLOOD GLUCOSE INCREASED [None]
  - DECREASED APPETITE [None]
  - NAUSEA [None]
  - PLATELET COUNT DECREASED [None]
  - GLYCOSYLATED HAEMOGLOBIN INCREASED [None]
  - ALANINE AMINOTRANSFERASE INCREASED [None]
  - EAR HAEMORRHAGE [None]
  - BLOOD CHOLESTEROL INCREASED [None]
  - ASPARTATE AMINOTRANSFERASE INCREASED [None]
